FAERS Safety Report 8551788-X (Version None)
Quarter: 2012Q3

REPORT INFORMATION
  Report Type: 
  Country: None (occurrence: None)
  Receive Date: 20120730
  Receipt Date: 20120725
  Transmission Date: 20120928
  Serious: Yes (Other)
  Sender: FDA-Public Use
  Company Number: US-PFIZER INC-2012180205

PATIENT
  Sex: Female
  Weight: 77.1 kg

DRUGS (5)
  1. LYRICA [Suspect]
     Indication: ARTHRALGIA
     Dosage: 50 MG, 2X/DAY
     Route: 048
     Dates: start: 20120714, end: 20120715
  2. ASPIRIN [Concomitant]
     Indication: ANTICOAGULANT THERAPY
     Dosage: 325 MG, DAILY
  3. LOSARTAN [Concomitant]
     Indication: HYPERTENSION
     Dosage: UNK,DAILY
  4. OXYGEN [Concomitant]
     Indication: DYSPNOEA
     Dosage: UNK
  5. METOPROLOL TARTRATE [Concomitant]
     Indication: HYPERTENSION
     Dosage: ONE AND HALF TABLET OF UNKNOWN DOSE, 2X/DAY
     Route: 048

REACTIONS (3)
  - JOINT SWELLING [None]
  - VISION BLURRED [None]
  - DYSPNOEA [None]
